FAERS Safety Report 9820411 (Version 1)
Quarter: 2013Q4

REPORT INFORMATION
  Report Type: Spontaneous
  Country: US (occurrence: None)
  Receive Date: 20131223
  Receipt Date: 20131223
  Transmission Date: 20140711
  Serious: No
  Sender: FDA-Public Use
  Company Number: 220566

PATIENT
  Age: 56 Year
  Sex: Male

DRUGS (1)
  1. PICATO [Suspect]
     Indication: SKIN DISORDER
     Route: 061
     Dates: start: 20130211, end: 20130213

REACTIONS (5)
  - Application site reaction [None]
  - Application site pain [None]
  - Application site erythema [None]
  - Application site exfoliation [None]
  - Drug administration error [None]
